FAERS Safety Report 12244783 (Version 1)
Quarter: 2016Q2

REPORT INFORMATION
  Report Type: Spontaneous
  Country: DE (occurrence: DE)
  Receive Date: 20160407
  Receipt Date: 20160407
  Transmission Date: 20160815
  Serious: Yes (Death, Hospitalization)
  Sender: FDA-Public Use
  Company Number: DE-AUROBINDO-AUR-APL-2016-04293

PATIENT
  Age: 76 Year
  Sex: Female

DRUGS (3)
  1. IBUPROFEN 400MG [Suspect]
     Active Substance: IBUPROFEN
     Indication: PAIN
     Dosage: 8X400 MGUNK
     Route: 065
  2. LOSARTAN. [Suspect]
     Active Substance: LOSARTAN
     Indication: PRODUCT USED FOR UNKNOWN INDICATION
     Route: 065
  3. DABIGATRAN ETEXILATE [Suspect]
     Active Substance: DABIGATRAN ETEXILATE
     Indication: PRODUCT USED FOR UNKNOWN INDICATION
     Dosage: 110 MG, TWO TIMES A DAY
     Route: 065

REACTIONS (16)
  - General physical health deterioration [Unknown]
  - Inflammation [Unknown]
  - Respiratory disorder [Unknown]
  - Weight decreased [Unknown]
  - Paraesthesia [Unknown]
  - Oedema peripheral [Unknown]
  - Haemorrhage [Unknown]
  - Haemorrhagic anaemia [Unknown]
  - Sepsis [Fatal]
  - Gastrointestinal haemorrhage [Unknown]
  - Pneumonia [Unknown]
  - Overdose [Unknown]
  - Acute kidney injury [Unknown]
  - Self-medication [Unknown]
  - Pain in extremity [Unknown]
  - Anuria [Unknown]
